FAERS Safety Report 7658258-1 (Version None)
Quarter: 2011Q3

REPORT INFORMATION
  Report Type: 
  Country: None (occurrence: None)
  Receive Date: 20110804
  Receipt Date: 20110804
  Transmission Date: 20111222
  Serious: Yes (Disabling)
  Sender: FDA-Public Use
  Company Number: None

PATIENT
  Sex: Female

DRUGS (2)
  1. XOLAIR [Suspect]
     Indication: ASTHMA
     Dosage: 225MG Q2WKS SUBQ
     Route: 058
     Dates: start: 20090901, end: 20101101
  2. XOLAIR [Suspect]
     Indication: HYPERSENSITIVITY
     Dosage: 225MG Q2WKS SUBQ
     Route: 058
     Dates: start: 20090901, end: 20101101

REACTIONS (1)
  - SQUAMOUS CELL CARCINOMA [None]
